FAERS Safety Report 6914078-4 (Version None)
Quarter: 2010Q3

REPORT INFORMATION
  Report Type: 
  Country: None (occurrence: None)
  Receive Date: 20100809
  Receipt Date: 20100805
  Transmission Date: 20110219
  Serious: Yes (Death, Other)
  Sender: FDA-Public Use
  Company Number: PHHY2009MX49785

PATIENT
  Sex: Female

DRUGS (1)
  1. FEMARA [Suspect]
     Indication: BREAST CANCER
     Dosage: 4 TABLETS (2.5 MG) PER DAY
     Route: 048
     Dates: start: 20081201, end: 20090602

REACTIONS (2)
  - CEREBRAL THROMBOSIS [None]
  - LEUKAEMIA [None]
